FAERS Safety Report 7263466-8 (Version None)
Quarter: 2011Q1

REPORT INFORMATION
  Report Type: 
  Country: None (occurrence: None)
  Receive Date: 20110130
  Receipt Date: 20101201
  Transmission Date: 20110831
  Serious: No
  Sender: FDA-Public Use
  Company Number: US-ABBOTT-10P-163-0689347-00

PATIENT
  Weight: 78.088 kg

DRUGS (4)
  1. LEFLUNOMIDE [Concomitant]
     Indication: RHEUMATOID ARTHRITIS
  2. HUMIRA [Suspect]
     Indication: RHEUMATOID ARTHRITIS
     Dates: start: 20090101, end: 20100601
  3. METOPROLOL [Concomitant]
     Indication: HYPERTENSION
  4. DIOVAN [Concomitant]
     Indication: HYPERTENSION

REACTIONS (3)
  - MUSCULOSKELETAL STIFFNESS [None]
  - ARTHRALGIA [None]
  - DRUG INEFFECTIVE [None]
